FAERS Safety Report 26202446 (Version 1)
Quarter: 2025Q4

REPORT INFORMATION
  Report Type: Other
  Country: CA (occurrence: CA)
  Receive Date: 20251226
  Receipt Date: 20251226
  Transmission Date: 20260117
  Serious: Yes (Hospitalization, Other)
  Sender: NOVITIUM PHARMA
  Company Number: CA-NOVITIUM PHARMA-000445

PATIENT
  Age: 62 Year
  Sex: Female

DRUGS (1)
  1. HYDROXYCHLOROQUINE [Suspect]
     Active Substance: HYDROXYCHLOROQUINE
     Indication: Systemic lupus erythematosus
     Dosage: CUMULATIVE DOSE EXCEEDING 2000 G

REACTIONS (4)
  - Myocardial fibrosis [Unknown]
  - Cardiac failure [Unknown]
  - Cardiomyopathy [Unknown]
  - Cardiotoxicity [Unknown]
